FAERS Safety Report 7025539-4 (Version None)
Quarter: 2010Q4

REPORT INFORMATION
  Report Type: 
  Country: None (occurrence: None)
  Receive Date: 20101003
  Receipt Date: 20100923
  Transmission Date: 20110411
  Serious: Yes (Other)
  Sender: FDA-Public Use
  Company Number: PHHY2009CA29285

PATIENT
  Sex: Female

DRUGS (1)
  1. SANDOSTATIN LAR [Suspect]
     Indication: ACROMEGALY
     Dosage: 30 MG, EVERY 4 WEEKS
     Route: 030
     Dates: start: 20050913

REACTIONS (19)
  - ACNE CYSTIC [None]
  - ARTHRITIS [None]
  - BONE DISORDER [None]
  - DIARRHOEA [None]
  - DRY SKIN [None]
  - FAECAL INCONTINENCE [None]
  - FATIGUE [None]
  - HEADACHE [None]
  - HYPOAESTHESIA [None]
  - IRRITABILITY [None]
  - MENORRHAGIA [None]
  - MENSTRUATION IRREGULAR [None]
  - MUSCULAR WEAKNESS [None]
  - PAIN [None]
  - PITUITARY TUMOUR RECURRENT [None]
  - PITUITARY TUMOUR REMOVAL [None]
  - SEBORRHOEA [None]
  - SKIN ODOUR ABNORMAL [None]
  - VERTIGO [None]
